FAERS Safety Report 6404769-6 (Version None)
Quarter: 2009Q4

REPORT INFORMATION
  Report Type: 
  Country: None (occurrence: None)
  Receive Date: 20091016
  Receipt Date: 20091008
  Transmission Date: 20100525
  Serious: Yes (Hospitalization, Other)
  Sender: FDA-Public Use
  Company Number: BR-ABBOTT-09P-020-0601800-00

PATIENT
  Sex: Female
  Weight: 50 kg

DRUGS (5)
  1. HUMIRA [Suspect]
     Indication: RHEUMATOID ARTHRITIS
     Route: 058
     Dates: start: 20060101
  2. EXELON [Concomitant]
     Indication: PARKINSON'S DISEASE
     Route: 048
     Dates: start: 20090901
  3. EXELON [Concomitant]
     Indication: PROPHYLAXIS
  4. ANTI-INFLAMMATORY [Concomitant]
     Indication: RHEUMATOID ARTHRITIS
     Route: 048
     Dates: start: 20040101
  5. OMEPRAZOLE [Concomitant]
     Indication: GASTRIC DISORDER
     Route: 048
     Dates: start: 20080101

REACTIONS (11)
  - CEREBROVASCULAR ACCIDENT [None]
  - CONVULSION [None]
  - DEPRESSION [None]
  - DYSPHAGIA [None]
  - DYSPHEMIA [None]
  - HYPERTENSION [None]
  - LISTLESS [None]
  - NEUROPATHY PERIPHERAL [None]
  - SPEECH DISORDER [None]
  - SPINAL FRACTURE [None]
  - TREMOR [None]
